FAERS Safety Report 16170632 (Version 2)
Quarter: 2019Q2

REPORT INFORMATION
  Report Type: Spontaneous
  Country: US (occurrence: US)
  Receive Date: 20190408
  Receipt Date: 20190528
  Transmission Date: 20190711
  Serious: Yes (Death, Other)
  Sender: FDA-Public Use
  Company Number: US-GILEAD-2019-0400669

PATIENT
  Age: 68 Year
  Sex: Female
  Weight: 73.9 kg

DRUGS (27)
  1. CHLORHEXIDINE [Concomitant]
     Active Substance: CHLORHEXIDINE
  2. DAPTOMYCIN. [Concomitant]
     Active Substance: DAPTOMYCIN
  3. CALCIUM GLUCONATE. [Concomitant]
     Active Substance: CALCIUM GLUCONATE
  4. DIPHENHYDRAMINE. [Concomitant]
     Active Substance: DIPHENHYDRAMINE
  5. POTASSIUM CHLORIDE. [Concomitant]
     Active Substance: POTASSIUM CHLORIDE
  6. ACYCLOVIR [ACICLOVIR] [Concomitant]
     Active Substance: ACYCLOVIR
  7. MEROPENEM. [Concomitant]
     Active Substance: MEROPENEM
  8. LASIX [Concomitant]
     Active Substance: FUROSEMIDE
  9. LACTATED RINGERS SOLUTION [Concomitant]
     Active Substance: CALCIUM CHLORIDE\POTASSIUM CHLORIDE\SODIUM CHLORIDE\SODIUM LACTATE
  10. KEPPRA [Concomitant]
     Active Substance: LEVETIRACETAM
  11. EPINEPHRINE. [Concomitant]
     Active Substance: EPINEPHRINE
  12. SODIUM PHOSPHATE [Concomitant]
     Active Substance: SODIUM PHOSPHATE
  13. YESCARTA [Suspect]
     Active Substance: AXICABTAGENE CILOLEUCEL
     Indication: DIFFUSE LARGE B-CELL LYMPHOMA
     Dosage: UNK
     Route: 042
     Dates: start: 20190325, end: 20190325
  14. CALCIUM CHLORIDE. [Concomitant]
     Active Substance: CALCIUM CHLORIDE
  15. DUONEB [Concomitant]
     Active Substance: ALBUTEROL SULFATE\IPRATROPIUM BROMIDE
  16. MICAFUNGIN. [Concomitant]
     Active Substance: MICAFUNGIN SODIUM
  17. GLUCAGON. [Concomitant]
     Active Substance: GLUCAGON
  18. PROCHLORPERAZINE. [Concomitant]
     Active Substance: PROCHLORPERAZINE
  19. SODIUM CHLORIDE. [Concomitant]
     Active Substance: SODIUM CHLORIDE
  20. DOCUSATE [Concomitant]
     Active Substance: DOCUSATE
  21. VITAMIN K1 [Concomitant]
     Active Substance: PHYTONADIONE
  22. ALBUTEROL [SALBUTAMOL] [Concomitant]
     Active Substance: ALBUTEROL
  23. ATROPINE. [Concomitant]
     Active Substance: ATROPINE
  24. MORPHINE [Concomitant]
     Active Substance: MORPHINE
  25. POTASSIUM PHOSPHATES [Concomitant]
     Active Substance: POTASSIUM PHOSPHATE, DIBASIC\POTASSIUM PHOSPHATE, MONOBASIC
  26. PANTOPRAZOLE [Concomitant]
     Active Substance: PANTOPRAZOLE
  27. MAGNESIUM SULFATE. [Concomitant]
     Active Substance: MAGNESIUM SULFATE

REACTIONS (3)
  - Haemophagocytic lymphohistiocytosis [Fatal]
  - Cytokine release syndrome [Fatal]
  - Disseminated intravascular coagulation [Unknown]

NARRATIVE: CASE EVENT DATE: 20190328
